FAERS Safety Report 20174663 (Version 2)
Quarter: 2022Q1

REPORT INFORMATION
  Report Type: Spontaneous
  Country: GR (occurrence: GR)
  Receive Date: 20211213
  Receipt Date: 20220127
  Transmission Date: 20220423
  Serious: Yes (Hospitalization, Other)
  Sender: FDA-Public Use
  Company Number: GR-002147023-NVSC2021GR268914

PATIENT
  Age: 56 Year
  Sex: Female

DRUGS (2)
  1. AMOXICILLIN\CLAVULANIC ACID [Suspect]
     Active Substance: AMOXICILLIN\CLAVULANIC ACID
     Indication: Otitis media
     Dosage: UNK
     Route: 065
  2. PREDNISOLONE [Concomitant]
     Active Substance: PREDNISOLONE
     Indication: Product used for unknown indication
     Dosage: UNK
     Route: 016

REACTIONS (7)
  - Drug-induced liver injury [Unknown]
  - Faeces discoloured [Unknown]
  - Chromaturia [Unknown]
  - Jaundice [Unknown]
  - Cholestasis [Unknown]
  - Pruritus [Unknown]
  - Ocular icterus [Unknown]
